FAERS Safety Report 8815705 (Version 2)
Quarter: 2012Q4

REPORT INFORMATION
  Report Type: 
  Country: US (occurrence: US)
  Receive Date: 20120928
  Receipt Date: 20121113
  Transmission Date: 20130627
  Serious: Yes (Other)
  Sender: FDA-Public Use
  Company Number: US-PERRIGO-12US008306

PATIENT
  Age: 47 Year
  Sex: Male
  Weight: 77.1 kg

DRUGS (1)
  1. OXYMETAZOLINE HYDROCHLORIDE [Suspect]
     Indication: NASAL CONGESTION
     Dosage: 2 sprays, Twice
     Route: 045
     Dates: start: 20120919, end: 20120919

REACTIONS (7)
  - Hypersensitivity [Recovered/Resolved]
  - Pharyngeal oedema [Recovered/Resolved]
  - Rhinorrhoea [Recovered/Resolved]
  - Pruritus [Recovered/Resolved]
  - Urticaria [Recovered/Resolved]
  - Throat irritation [Recovered/Resolved]
  - Accidental exposure to product [Recovered/Resolved]
